FAERS Safety Report 17345685 (Version 2)
Quarter: 2020Q1

REPORT INFORMATION
  Report Type: Report from Study
  Country: US (occurrence: US)
  Receive Date: 20200129
  Receipt Date: 20200207
  Transmission Date: 20200409
  Serious: Yes (Death, Hospitalization)
  Sender: FDA-Public Use
  Company Number: NVSC2020US022653

PATIENT
  Sex: Male
  Weight: 64.4 kg

DRUGS (2)
  1. LAMPRENE [Suspect]
     Active Substance: CLOFAZIMINE
     Indication: TENOSYNOVITIS
  2. LAMPRENE [Suspect]
     Active Substance: CLOFAZIMINE
     Indication: OSTEOMYELITIS
     Dosage: 100 MG, QD
     Route: 048
     Dates: start: 20191024, end: 20191226

REACTIONS (6)
  - Pneumothorax spontaneous [Fatal]
  - Pulmonary oedema [Fatal]
  - Pulmonary embolism [Fatal]
  - Pulmonary fibrosis [Fatal]
  - Rheumatoid arthritis [Fatal]
  - Condition aggravated [Fatal]
